FAERS Safety Report 4596045-1 (Version None)
Quarter: 2005Q1

REPORT INFORMATION
  Report Type: 
  Country: None (occurrence: None)
  Receive Date: 20050225
  Receipt Date: 20050214
  Transmission Date: 20050727
  Serious: Yes (Hospitalization, Other)
  Sender: FDA-Public Use
  Company Number: HQWYE336314FEB05

PATIENT
  Age: 5 Year
  Sex: Female

DRUGS (2)
  1. CHILDREN'S ADVIL [Suspect]
     Indication: PHARYNGOLARYNGEAL PAIN
     Dosage: ORAL
     Route: 048
     Dates: start: 20041221, end: 20041231
  2. AMOXICILLIN [Suspect]
     Indication: BRONCHITIS
     Dosage: 1 G 1X PER 1 DAY UNKNOWN
     Route: 065
     Dates: start: 20041227

REACTIONS (4)
  - BRONCHITIS [None]
  - HEART RATE INCREASED [None]
  - PNEUMONIA PNEUMOCOCCAL [None]
  - RENAL FAILURE ACUTE [None]
